FAERS Safety Report 7821134-5 (Version None)
Quarter: 2011Q4

REPORT INFORMATION
  Report Type: 
  Country: None (occurrence: None)
  Receive Date: 20111018
  Receipt Date: 20111006
  Transmission Date: 20120403
  Serious: Yes (Hospitalization, Other)
  Sender: FDA-Public Use
  Company Number: NL-MEDIMMUNE-MEDI-0013698

PATIENT
  Sex: Male
  Weight: 7.625 kg

DRUGS (4)
  1. ESOMEPRAZOLE SODIUM [Concomitant]
  2. XYLOMETAZOLINE [Concomitant]
  3. SYNAGIS [Suspect]
     Indication: BRONCHOPULMONARY DYSPLASIA
     Route: 030
     Dates: start: 20110901, end: 20110929
  4. BACTRIM [Concomitant]

REACTIONS (6)
  - WEIGHT DECREASED [None]
  - DYSPHAGIA [None]
  - INFANTILE SPITTING UP [None]
  - RETCHING [None]
  - BRONCHIAL SECRETION RETENTION [None]
  - PALLOR [None]
